FAERS Safety Report 9398831 (Version 1)
Quarter: 2013Q3

REPORT INFORMATION
  Report Type: Spontaneous
  Country: US (occurrence: US)
  Receive Date: 20130712
  Receipt Date: 20130712
  Transmission Date: 20140515
  Serious: No
  Sender: FDA-Public Use
  Company Number: US-TEVA-418517USA

PATIENT
  Age: 31 Year
  Sex: Male
  Weight: 90.8 kg

DRUGS (1)
  1. PROAIR HFA [Suspect]

REACTIONS (1)
  - Blood alcohol increased [Recovered/Resolved]
